FAERS Safety Report 15863542 (Version 1)
Quarter: 2019Q1

REPORT INFORMATION
  Report Type: Spontaneous
  Country: US (occurrence: US)
  Receive Date: 20190124
  Receipt Date: 20190124
  Transmission Date: 20190417
  Serious: Yes (Hospitalization)
  Sender: FDA-Public Use
  Company Number: US-JNJFOC-20190127999

PATIENT
  Age: 38 Year
  Sex: Male
  Weight: 72.58 kg

DRUGS (1)
  1. INVOKANA [Suspect]
     Active Substance: CANAGLIFLOZIN
     Indication: TYPE 1 DIABETES MELLITUS
     Route: 048
     Dates: start: 20130925, end: 20150809

REACTIONS (5)
  - Toe amputation [Unknown]
  - Osteomyelitis [Recovering/Resolving]
  - Off label use [Unknown]
  - Diabetic foot infection [Recovering/Resolving]
  - Product use in unapproved indication [Unknown]

NARRATIVE: CASE EVENT DATE: 20130925
